FAERS Safety Report 4754601-1 (Version None)
Quarter: 2005Q3

REPORT INFORMATION
  Report Type: 
  Country: None (occurrence: None)
  Receive Date: 20050829
  Receipt Date: 20050815
  Transmission Date: 20060218
  Serious: Yes (Hospitalization)
  Sender: FDA-Public Use
  Company Number: 415033

PATIENT
  Age: 3 Year
  Sex: Male
  Weight: 11.9 kg

DRUGS (13)
  1. CARVEDILOL [Suspect]
     Route: 048
     Dates: start: 20040720
  2. DIGOXIN [Suspect]
     Dosage: 60MCG TWICE PER DAY
     Route: 048
     Dates: start: 20050125
  3. BLINDED TRIAL MEDICATION [Suspect]
     Route: 048
     Dates: start: 20031125, end: 20040816
  4. DIGOXIN [Suspect]
     Dosage: 40MCG TWICE PER DAY
     Route: 048
     Dates: start: 20040721, end: 20050111
  5. DIGOXIN [Suspect]
     Route: 048
     Dates: start: 20050111, end: 20050125
  6. FUROSEMIDE [Concomitant]
     Dosage: 14MG THREE TIMES PER DAY
     Route: 048
     Dates: start: 20040519
  7. CAPTOPRIL [Concomitant]
     Dosage: 18.5MG THREE TIMES PER DAY
     Route: 048
     Dates: start: 20040526
  8. ASPIRIN [Concomitant]
     Dosage: 40MG ALTERNATE DAYS
     Route: 048
     Dates: start: 20030701
  9. OXYGEN [Concomitant]
     Route: 045
     Dates: start: 20030701
  10. SPIRONOLACTONE [Concomitant]
     Dosage: 10MG FOUR TIMES PER DAY
     Dates: start: 20031110
  11. OXYGEN [Concomitant]
     Dates: start: 20030701
  12. PEPCID [Concomitant]
     Route: 048
     Dates: start: 20031003
  13. DIURIL [Concomitant]
     Dosage: 100MG TWICE PER DAY
     Dates: start: 20050527, end: 20050811

REACTIONS (8)
  - BRADYCARDIA [None]
  - CARDIOACTIVE DRUG LEVEL INCREASED [None]
  - DEHYDRATION [None]
  - HYPOTENSION [None]
  - LETHARGY [None]
  - THERAPEUTIC AGENT TOXICITY [None]
  - URINE OUTPUT DECREASED [None]
  - VOMITING [None]
